FAERS Safety Report 7484841-2 (Version None)
Quarter: 2011Q2

REPORT INFORMATION
  Report Type: 
  Country: None (occurrence: None)
  Receive Date: 20110517
  Receipt Date: 20100831
  Transmission Date: 20111010
  Serious: Yes (Other)
  Sender: FDA-Public Use
  Company Number: US-BAYER-201015251NA

PATIENT
  Age: 39 Year
  Sex: Female
  Weight: 70 kg

DRUGS (6)
  1. YASMIN [Suspect]
     Dates: start: 20030728
  2. YASMIN [Suspect]
     Dosage: UNK UNK, QD
     Dates: start: 20050501, end: 20050615
  3. ZYTREX [Concomitant]
  4. ALBUTEROL [Concomitant]
  5. IMITREX [Concomitant]
     Dates: start: 20050101
  6. YASMIN [Suspect]
     Indication: MENSTRUAL CYCLE MANAGEMENT
     Route: 048
     Dates: start: 20040901, end: 20050701

REACTIONS (7)
  - CHEST PAIN [None]
  - PULMONARY EMBOLISM [None]
  - DYSPNOEA [None]
  - PULMONARY INFARCTION [None]
  - PLEURISY [None]
  - DEEP VEIN THROMBOSIS [None]
  - ARTHRALGIA [None]
